FAERS Safety Report 8950599 (Version 2)
Quarter: 2012Q4

REPORT INFORMATION
  Report Type: 
  Country: US (occurrence: US)
  Receive Date: 20121207
  Receipt Date: 20121211
  Transmission Date: 20130627
  Serious: Yes (Hospitalization)
  Sender: FDA-Public Use
  Company Number: US-BAYER-2012-126462

PATIENT
  Age: 28 Year
  Sex: Female

DRUGS (5)
  1. YASMIN [Suspect]
     Indication: ORAL CONTRACEPTIVE
  2. TORADOL [Concomitant]
     Indication: CHEST PAIN
  3. ZOFRAN [Concomitant]
     Indication: NAUSEA
  4. ROBAXIN [Concomitant]
     Indication: NECK CRAMPS
  5. DILAUDID [Concomitant]

REACTIONS (1)
  - Pulmonary embolism [None]
